FAERS Safety Report 9217784 (Version 3)
Quarter: 2013Q2

REPORT INFORMATION
  Report Type: Spontaneous
  Country: SE (occurrence: SE)
  Receive Date: 20130408
  Receipt Date: 20130613
  Transmission Date: 20140414
  Serious: Yes (Hospitalization)
  Sender: FDA-Public Use
  Company Number: SE-ASTRAZENECA-2013SE22057

PATIENT
  Age: 32211 Day
  Sex: Male

DRUGS (12)
  1. AZD6140 CODE NOT BROKEN [Suspect]
     Indication: CORONARY ARTERY DISEASE
     Route: 048
     Dates: start: 20110907, end: 20120131
  2. AZD6140 CODE NOT BROKEN [Suspect]
     Indication: CORONARY ARTERY DISEASE
     Route: 048
     Dates: start: 20120202, end: 20120312
  3. ATACAND [Concomitant]
     Indication: CORONARY ARTERY DISEASE
     Route: 048
  4. GLYTRIN [Concomitant]
     Indication: ANGINA PECTORIS
     Route: 060
  5. WARFARIN [Concomitant]
     Indication: ATRIAL FIBRILLATION
     Route: 048
     Dates: start: 20120303
  6. FURIX RETARD [Concomitant]
     Indication: CORONARY ARTERY DISEASE
     Route: 048
  7. FINASTERIDE [Concomitant]
     Indication: BENIGN PROSTATIC HYPERPLASIA
     Route: 048
  8. SIMVASTATIN [Concomitant]
     Indication: HYPERLIPIDAEMIA
     Route: 048
  9. NITROMEX [Concomitant]
     Indication: CORONARY ARTERY DISEASE
     Route: 060
  10. TRAVATAN [Concomitant]
     Indication: GLAUCOMA
     Route: 047
  11. ASA [Concomitant]
     Route: 048
     Dates: end: 20120312
  12. ATENOLOL [Suspect]
     Indication: HYPERTENSION
     Route: 048
     Dates: end: 20130330

REACTIONS (1)
  - Sick sinus syndrome [Recovered/Resolved]
